FAERS Safety Report 10929352 (Version 2)
Quarter: 2015Q2

REPORT INFORMATION
  Report Type: Spontaneous
  Country: US (occurrence: US)
  Receive Date: 20150319
  Receipt Date: 20150524
  Transmission Date: 20150821
  Serious: No
  Sender: FDA-Public Use
  Company Number: US-JNJFOC-20140314243

PATIENT
  Sex: Male

DRUGS (2)
  1. GENERIC METHYLPHENIDATE HYDROCHLORIDE [Suspect]
     Active Substance: METHYLPHENIDATE HYDROCHLORIDE
     Indication: CENTRAL AUDITORY PROCESSING DISORDER
     Route: 048
     Dates: start: 2013, end: 2013
  2. GENERIC METHYLPHENIDATE HYDROCHLORIDE [Suspect]
     Active Substance: METHYLPHENIDATE HYDROCHLORIDE
     Indication: CENTRAL AUDITORY PROCESSING DISORDER
     Route: 048
     Dates: start: 2013, end: 2013

REACTIONS (3)
  - Therapeutic response unexpected [Unknown]
  - Product use issue [Unknown]
  - Drug ineffective for unapproved indication [Unknown]
